FAERS Safety Report 7642806-1 (Version None)
Quarter: 2011Q3

REPORT INFORMATION
  Report Type: 
  Country: None (occurrence: None)
  Receive Date: 20110728
  Receipt Date: 20110720
  Transmission Date: 20111222
  Serious: Yes (Death, Hospitalization, Other)
  Sender: FDA-Public Use
  Company Number: US-AMGEN-USASP2011037962

PATIENT
  Age: 82 Year
  Sex: Male

DRUGS (6)
  1. LEVOTHROID [Concomitant]
  2. SPIRIVA [Concomitant]
  3. PROCRIT [Suspect]
     Indication: PRODUCT USED FOR UNKNOWN INDICATION
  4. REVLIMID [Suspect]
  5. LASIX [Concomitant]
  6. E-TABS [Concomitant]

REACTIONS (5)
  - CHILLS [None]
  - DECREASED APPETITE [None]
  - NO THERAPEUTIC RESPONSE [None]
  - DEATH [None]
  - UPPER RESPIRATORY TRACT INFECTION [None]
